FAERS Safety Report 10967244 (Version 1)
Quarter: 2015Q1

REPORT INFORMATION
  Report Type: Spontaneous
  Country: DE (occurrence: DE)
  Receive Date: 20150330
  Receipt Date: 20150330
  Transmission Date: 20150721
  Serious: Yes (Life-Threatening, Hospitalization)
  Sender: FDA-Public Use
  Company Number: DE-BRACCO-001900

PATIENT
  Age: 74 Year
  Sex: Female
  Weight: 51 kg

DRUGS (14)
  1. CALCILAC KT [Concomitant]
  2. GALVUS [Concomitant]
     Active Substance: VILDAGLIPTIN
  3. AMITRIPTYLIN [Concomitant]
     Active Substance: AMITRIPTYLINE
  4. FUROSEMID [Concomitant]
     Active Substance: FUROSEMIDE
     Dosage: 1 DF IN THE MORNING, 0.5 DF AT NOON TIME
  5. FOSAMAX [Concomitant]
     Active Substance: ALENDRONATE SODIUM
     Dosage: ON WEDNESDAY
  6. PANTOZOL [Concomitant]
     Active Substance: PANTOPRAZOLE SODIUM
  7. ZANTAC [Concomitant]
     Active Substance: RANITIDINE HYDROCHLORIDE
  8. BISOPROLOL [Suspect]
     Active Substance: BISOPROLOL
  9. PROHANCE [Suspect]
     Active Substance: GADOTERIDOL
     Indication: NUCLEAR MAGNETIC RESONANCE IMAGING
     Route: 042
     Dates: start: 20150306, end: 20150306
  10. RAMIPRIL. [Concomitant]
     Active Substance: RAMIPRIL
  11. AMLODIPIN [Concomitant]
     Active Substance: AMLODIPINE BESYLATE
  12. DOXAZOSIN [Concomitant]
     Active Substance: DOXAZOSIN\DOXAZOSIN MESYLATE
  13. FALITHROM [Concomitant]
     Active Substance: PHENPROCOUMON
  14. URBASON [Concomitant]
     Active Substance: METHYLPREDNISOLONE

REACTIONS (7)
  - Urinary tract infection [Recovering/Resolving]
  - Pulmonary congestion [Recovered/Resolved]
  - Feeling hot [Recovered/Resolved]
  - Atrioventricular block second degree [Recovered/Resolved]
  - Cardiac arrest [Recovered/Resolved]
  - Loss of consciousness [Recovered/Resolved]
  - Pneumonia [Recovering/Resolving]

NARRATIVE: CASE EVENT DATE: 201503
